FAERS Safety Report 6493130-4 (Version None)
Quarter: 2009Q4

REPORT INFORMATION
  Report Type: 
  Country: None (occurrence: None)
  Receive Date: 20091211
  Receipt Date: 20091211
  Transmission Date: 20100525
  Serious: Yes (Other)
  Sender: FDA-Public Use
  Company Number: None

PATIENT
  Age: 58 Year
  Sex: Male
  Weight: 63.5036 kg

DRUGS (1)
  1. VYTORIN [Suspect]
     Indication: CARDIAC OPERATION
     Dosage: 1 DAILY INJ
     Dates: start: 20091001, end: 20091110

REACTIONS (1)
  - MOVEMENT DISORDER [None]
